FAERS Safety Report 21623107 (Version 2)
Quarter: 2022Q4

REPORT INFORMATION
  Report Type: Report from Study
  Country: CO (occurrence: CO)
  Receive Date: 20221121
  Receipt Date: 20221207
  Transmission Date: 20230112
  Serious: Yes (Other)
  Sender: FDA-Public Use
  Company Number: CO-UCBSA-2022066207

PATIENT
  Age: 51 Year
  Sex: Male
  Weight: 56 kg

DRUGS (1)
  1. CERTOLIZUMAB PEGOL [Suspect]
     Active Substance: CERTOLIZUMAB PEGOL
     Indication: Rheumatoid arthritis
     Dosage: 200 MILLIGRAM, EV 2 WEEKS(QOW)
     Route: 058
     Dates: start: 20220421, end: 20220929

REACTIONS (5)
  - Choking [Recovering/Resolving]
  - Tuberculosis [Recovering/Resolving]
  - Hyperhidrosis [Recovering/Resolving]
  - Therapy interrupted [Unknown]
  - Product administration error [Unknown]

NARRATIVE: CASE EVENT DATE: 20221013
